FAERS Safety Report 4288788-4 (Version None)
Quarter: 2004Q1

REPORT INFORMATION
  Report Type: 
  Country: None (occurrence: None)
  Receive Date: 20040205
  Receipt Date: 20040121
  Transmission Date: 20041129
  Serious: Yes (Death, Hospitalization)
  Sender: FDA-Public Use
  Company Number: 2003-06328

PATIENT
  Age: 65 Year
  Sex: Male

DRUGS (4)
  1. VIREAD [Suspect]
     Indication: HIV INFECTION
     Dosage: 300 MG QD PO
     Route: 048
     Dates: start: 20030429, end: 20030909
  2. VIDEX [Suspect]
     Indication: HIV INFECTION
     Dosage: 250 MG DAILY PO
     Route: 048
     Dates: start: 20030429, end: 20030909
  3. VIRACEPT [Suspect]
     Indication: HIV INFECTION
     Dosage: 250 MG DAILY PO
     Route: 048
     Dates: start: 20030429, end: 20030909
  4. ZINACEF [Concomitant]

REACTIONS (6)
  - ACUTE RESPIRATORY DISTRESS SYNDROME [None]
  - BACTERIAL INFECTION [None]
  - HAEMOGLOBIN DECREASED [None]
  - LACTIC ACIDOSIS [None]
  - LUNG INFILTRATION [None]
  - SEPTIC SHOCK [None]
